FAERS Safety Report 21907611 (Version 2)
Quarter: 2025Q3

REPORT INFORMATION
  Report Type: Spontaneous
  Country: JP (occurrence: JP)
  Receive Date: 20230125
  Receipt Date: 20250926
  Transmission Date: 20251020
  Serious: Yes (Death, Other)
  Sender: UNITED THERAPEUTICS
  Company Number: JP-UNITED THERAPEUTICS-UNT-2023-001708

PATIENT
  Age: 7 Year
  Sex: Female
  Weight: 19.1 kg

DRUGS (3)
  1. UNITUXIN [Suspect]
     Active Substance: DINUTUXIMAB
     Indication: Neuroblastoma recurrent
     Route: 041
     Dates: start: 20221220, end: 20221222
  2. FILGRASTIM [Concomitant]
     Active Substance: FILGRASTIM
     Indication: Neuroblastoma recurrent
     Dosage: 5 ?G/KG, QD (CYCLE 1)
     Dates: start: 20221217, end: 20221228
  3. MORPHINE HYDROCHLORIDE [Concomitant]
     Active Substance: MORPHINE HYDROCHLORIDE
     Indication: Neuroblastoma recurrent

REACTIONS (1)
  - Neuroblastoma recurrent [Fatal]

NARRATIVE: CASE EVENT DATE: 20230102
